FAERS Safety Report 6670044-8 (Version None)
Quarter: 2010Q2

REPORT INFORMATION
  Report Type: 
  Country: None (occurrence: None)
  Receive Date: 20100405
  Receipt Date: 20100323
  Transmission Date: 20101027
  Serious: Yes (Hospitalization)
  Sender: FDA-Public Use
  Company Number: 1000011742

PATIENT
  Age: 57 Year
  Sex: Male

DRUGS (4)
  1. LEXAPRO [Suspect]
     Dosage: 10 MG (10 MG, 1 IN 1 D),ORAL
     Route: 048
     Dates: start: 20091029, end: 20091125
  2. TRADAZOLAM (TABLETS) [Concomitant]
  3. OMEPRAZOLE [Concomitant]
  4. LORMETAZEPAM (TABLETS) [Concomitant]

REACTIONS (1)
  - HEPATITIS [None]
